FAERS Safety Report 9161623 (Version 1)
Quarter: 2013Q1

REPORT INFORMATION
  Report Type: Spontaneous
  Country: US (occurrence: US)
  Receive Date: 20130313
  Receipt Date: 20130313
  Transmission Date: 20140127
  Serious: Yes (Other)
  Sender: FDA-Public Use
  Company Number: US-ELI_LILLY_AND_COMPANY-US201303001980

PATIENT
  Age: 42 Year
  Sex: Female

DRUGS (2)
  1. HUMALOG LISPRO [Suspect]
     Indication: TYPE 1 DIABETES MELLITUS
     Dosage: UNK, PRN
  2. HUMALOG LISPRO [Suspect]
     Dosage: 10 U, UNK

REACTIONS (3)
  - Blood glucose increased [Recovered/Resolved]
  - Dyspnoea [Unknown]
  - Drug ineffective [Unknown]
